FAERS Safety Report 9665621 (Version 1)
Quarter: 2013Q4

REPORT INFORMATION
  Report Type: Spontaneous
  Country: US (occurrence: US)
  Receive Date: 20131104
  Receipt Date: 20131104
  Transmission Date: 20140711
  Serious: No
  Sender: FDA-Public Use
  Company Number: US-ROXANE LABORATORIES, INC.-2013-RO-01769RO

PATIENT
  Sex: Female

DRUGS (2)
  1. MONTELUKAST SODIUM [Suspect]
     Indication: ASTHMA
     Dosage: 10 MG
     Route: 048
     Dates: start: 20131029, end: 20131029
  2. MONTELUKAST SODIUM [Suspect]
     Indication: MULTIPLE ALLERGIES

REACTIONS (2)
  - Dizziness [Recovered/Resolved]
  - Headache [Not Recovered/Not Resolved]
